FAERS Safety Report 19398652 (Version 1)
Quarter: 2021Q2

REPORT INFORMATION
  Report Type: Spontaneous
  Country: US (occurrence: US)
  Receive Date: 20210610
  Receipt Date: 20210610
  Transmission Date: 20210717
  Serious: No
  Sender: FDA-Public Use
  Company Number: None

PATIENT
  Age: 60 Year
  Sex: Male

DRUGS (1)
  1. INDAPAMIDE (INDAPAMIDE 2.5MG TAB) [Suspect]
     Active Substance: INDAPAMIDE
     Indication: HYPERTENSION
     Route: 048
     Dates: start: 20210312, end: 20210421

REACTIONS (3)
  - Hypokalaemia [None]
  - White blood cell count increased [None]
  - Muscle spasms [None]

NARRATIVE: CASE EVENT DATE: 20210421
